FAERS Safety Report 14610992 (Version 1)
Quarter: 2018Q1

REPORT INFORMATION
  Report Type: Report from Study
  Country: None (occurrence: IT)
  Receive Date: 20180308
  Receipt Date: 20180308
  Transmission Date: 20180509
  Serious: Yes (Other)
  Sender: FDA-Public Use
  Company Number: IT-ABBVIE-18K-083-2277678-00

PATIENT
  Age: 67 Year
  Sex: Male

DRUGS (2)
  1. DUODOPA [Suspect]
     Active Substance: CARBIDOPA\LEVODOPA
     Indication: PARKINSON^S DISEASE
     Dosage: MD 8 ML?CR 2?ED 3,7
     Route: 050
     Dates: start: 20160613
  2. DUODOPA [Suspect]
     Active Substance: CARBIDOPA\LEVODOPA
     Dosage: DECREASED DOSE MD 4+3 (7ML)?CR 2?ED 3,7
     Route: 050

REACTIONS (2)
  - Dystonia [Unknown]
  - Pain [Unknown]

NARRATIVE: CASE EVENT DATE: 201802
